FAERS Safety Report 19268530 (Version 2)
Quarter: 2021Q3

REPORT INFORMATION
  Report Type: Spontaneous
  Country: BR (occurrence: BR)
  Receive Date: 20210518
  Receipt Date: 20210701
  Transmission Date: 20211014
  Serious: Yes (Death, Other)
  Sender: FDA-Public Use
  Company Number: BR-ROCHE-2831371

PATIENT
  Age: 71 Year
  Sex: Female
  Weight: 80 kg

DRUGS (3)
  1. NORADRENALINE [Concomitant]
     Active Substance: NOREPINEPHRINE
     Dosage: 0.06 MCG/KG/MIN
  2. METHYLPREDNISOLONE SODIUM SUCCINATE. [Concomitant]
     Active Substance: METHYLPREDNISOLONE SODIUM SUCCINATE
     Route: 042
  3. ACTEMRA [Suspect]
     Active Substance: TOCILIZUMAB
     Indication: COVID-19
     Route: 042
     Dates: start: 20210418, end: 20210418

REACTIONS (11)
  - Subcutaneous emphysema [Unknown]
  - Cardio-respiratory arrest [Fatal]
  - Off label use [Unknown]
  - Respiratory failure [Unknown]
  - Constipation [Unknown]
  - Pneumothorax [Unknown]
  - Respiratory tract infection [Unknown]
  - Klebsiella test positive [Unknown]
  - Bacterial test positive [Unknown]
  - Escherichia test positive [Unknown]
  - COVID-19 [Unknown]

NARRATIVE: CASE EVENT DATE: 20210424
